FAERS Safety Report 6446859-8 (Version None)
Quarter: 2009Q4

REPORT INFORMATION
  Report Type: 
  Country: None (occurrence: None)
  Receive Date: 20091119
  Receipt Date: 20091116
  Transmission Date: 20100525
  Serious: Yes (Life-Threatening, Other)
  Sender: FDA-Public Use
  Company Number: FR-BRISTOL-MYERS SQUIBB COMPANY-14846034

PATIENT
  Age: 68 Year
  Sex: Female
  Weight: 83 kg

DRUGS (4)
  1. IXABEPILONE [Suspect]
     Indication: BREAST CANCER
     Dosage: CUMMULATIVE DOSE: 75.6 MG
     Route: 042
     Dates: start: 20090706, end: 20090706
  2. CYCLOPHOSPHAMIDE [Suspect]
     Indication: BREAST CANCER
     Dosage: CUMMULATIVE DOSE: 2850 MG.
     Route: 042
     Dates: start: 20090427, end: 20090608
  3. FLUOROURACIL [Suspect]
     Indication: BREAST CANCER
     Dosage: CUMMULATIVE DOSE: 2850 MG.
     Route: 042
     Dates: start: 20090427, end: 20090608
  4. EPIRUBICIN [Suspect]
     Indication: BREAST CANCER
     Dosage: CUMMULATIVE DOSE: 570 MG.
     Route: 042
     Dates: start: 20090427, end: 20090608

REACTIONS (7)
  - DECREASED APPETITE [None]
  - DIARRHOEA [None]
  - FEBRILE BONE MARROW APLASIA [None]
  - GENERAL PHYSICAL HEALTH DETERIORATION [None]
  - MUCOSAL INFLAMMATION [None]
  - THROMBOCYTOPENIA [None]
  - WEIGHT DECREASED [None]
